FAERS Safety Report 25869652 (Version 2)
Quarter: 2025Q4

REPORT INFORMATION
  Report Type: Spontaneous
  Country: US (occurrence: US)
  Receive Date: 20251001
  Receipt Date: 20251002
  Transmission Date: 20260118
  Serious: Yes (Death, Hospitalization, Other)
  Sender: PFIZER
  Company Number: US-PFIZER INC-202500194048

PATIENT
  Age: 59 Year
  Sex: Female
  Weight: 72.57 kg

DRUGS (2)
  1. TUKYSA [Suspect]
     Active Substance: TUCATINIB
     Indication: Breast cancer metastatic
     Dosage: 150 MG
     Dates: start: 20250904
  2. XARELTO [Concomitant]
     Active Substance: RIVAROXABAN
     Indication: Deep vein thrombosis
     Dosage: UNK
     Route: 048
     Dates: start: 20250904

REACTIONS (16)
  - Toxicity to various agents [Fatal]
  - Gastric ulcer [Unknown]
  - Haematemesis [Unknown]
  - Pancytopenia [Unknown]
  - Neutropenia [Unknown]
  - Stomatitis [Unknown]
  - Pharyngeal disorder [Unknown]
  - Oral candidiasis [Unknown]
  - Diarrhoea [Unknown]
  - Feeding disorder [Unknown]
  - Dysphagia [Unknown]
  - Oral pain [Unknown]
  - Oropharyngeal pain [Unknown]
  - Brain natriuretic peptide decreased [Unknown]
  - Full blood count decreased [Unknown]
  - Haemoglobin decreased [Unknown]

NARRATIVE: CASE EVENT DATE: 20250901
